FAERS Safety Report 4892736-3 (Version None)
Quarter: 2006Q1

REPORT INFORMATION
  Report Type: 
  Country: None (occurrence: None)
  Receive Date: 20060125
  Receipt Date: 20060125
  Transmission Date: 20060701
  Serious: Yes (Other)
  Sender: FDA-Public Use
  Company Number: None

PATIENT
  Age: 61 Year
  Sex: Female

DRUGS (11)
  1. GLIMEPIRIDE [Suspect]
     Indication: HYPERGLYCAEMIA
     Dosage: TAKE 1 TABLET TWICE A DAY
     Dates: start: 20051121
  2. PRECOSE [Concomitant]
  3. SYNTHROID [Concomitant]
  4. COZAAR [Concomitant]
  5. LIPITOR [Concomitant]
  6. INDERAL LA [Concomitant]
  7. SINGULAIR [Concomitant]
  8. TRICOR [Concomitant]
  9. PREVACID [Concomitant]
  10. FLOVENT HFA [Concomitant]
  11. NASONEX [Concomitant]

REACTIONS (3)
  - BLOOD GLUCOSE INCREASED [None]
  - DRUG INEFFECTIVE [None]
  - THERAPEUTIC RESPONSE UNEXPECTED WITH DRUG SUBSTITUTION [None]
